FAERS Safety Report 7110496-2 (Version None)
Quarter: 2010Q4

REPORT INFORMATION
  Report Type: 
  Country: None (occurrence: None)
  Receive Date: 20101118
  Receipt Date: 20101109
  Transmission Date: 20110411
  Serious: Yes (Hospitalization)
  Sender: FDA-Public Use
  Company Number: US-JNJFOC-20071203055

PATIENT
  Sex: Female
  Weight: 73.6 kg

DRUGS (76)
  1. GOLIMUMAB [Suspect]
     Indication: RHEUMATOID ARTHRITIS
     Dosage: WEEK 32
     Route: 058
  2. GOLIMUMAB [Suspect]
     Dosage: WEEK 44
     Route: 058
  3. GOLIMUMAB [Suspect]
     Dosage: WEEK 40
     Route: 058
  4. GOLIMUMAB [Suspect]
     Dosage: WEEK 36
     Route: 058
  5. GOLIMUMAB [Suspect]
     Dosage: WEEK 48
     Route: 058
  6. GOLIMUMAB [Suspect]
     Dosage: WEEK 28
     Route: 058
  7. GOLIMUMAB [Suspect]
     Dosage: WEEK 24
     Route: 058
  8. GOLIMUMAB [Suspect]
     Dosage: WEEK 20
     Route: 058
  9. GOLIMUMAB [Suspect]
     Dosage: WEEK 16
     Route: 058
  10. METHOTREXATE [Suspect]
     Indication: RHEUMATOID ARTHRITIS
     Dosage: WEEK 51, 8 CAPSULES
     Route: 048
  11. METHOTREXATE [Suspect]
     Dosage: WEEK 50, 8 CAPSULES
     Route: 048
  12. METHOTREXATE [Suspect]
     Dosage: WEEK 49, 8 CAPSULES
     Route: 048
  13. METHOTREXATE [Suspect]
     Dosage: WEEK 48, 8 CAPSULES
     Route: 048
  14. METHOTREXATE [Suspect]
     Dosage: WEEK 47, 8 CAPSULES
     Route: 048
  15. METHOTREXATE [Suspect]
     Dosage: WEEK 46, 8 CAPSULES
     Route: 048
  16. METHOTREXATE [Suspect]
     Dosage: WEEK 45, 8 CAPSULES
     Route: 048
  17. METHOTREXATE [Suspect]
     Dosage: WEEK 44, 8 CAPSULES
     Route: 048
  18. METHOTREXATE [Suspect]
     Dosage: WEEK 43, 8 CAPSULES
     Route: 048
  19. METHOTREXATE [Suspect]
     Dosage: WEEK 42, 8 CAPSULES
     Route: 048
  20. METHOTREXATE [Suspect]
     Dosage: WEEK 41, 8 CAPSULES
     Route: 048
  21. METHOTREXATE [Suspect]
     Dosage: WEEK 40, 8 CAPSULES
     Route: 048
  22. METHOTREXATE [Suspect]
     Dosage: WEEK 39, 8 CAPSULES
     Route: 048
  23. METHOTREXATE [Suspect]
     Dosage: WEEK 38, 8 CAPSULES
     Route: 048
  24. METHOTREXATE [Suspect]
     Dosage: WEEK 37, 8 CAPSULES
     Route: 048
  25. METHOTREXATE [Suspect]
     Dosage: WEEK 36, 8 CAPSULES
     Route: 048
  26. METHOTREXATE [Suspect]
     Dosage: WEEK 35, 8 CAPSULES
     Route: 048
  27. METHOTREXATE [Suspect]
     Dosage: WEEK 34, 8 CAPSULES
     Route: 048
  28. METHOTREXATE [Suspect]
     Dosage: WEEK 33, 8 CAPSULES
     Route: 048
  29. METHOTREXATE [Suspect]
     Dosage: WEEK 32, 8 CAPSULES
     Route: 048
  30. METHOTREXATE [Suspect]
     Dosage: WEEK 31, 8 CAPSULES
     Route: 048
  31. METHOTREXATE [Suspect]
     Dosage: WEEK 30, 8 CAPSULES
     Route: 048
  32. METHOTREXATE [Suspect]
     Dosage: WEEK 29, 8 CAPSULES
     Route: 048
  33. METHOTREXATE [Suspect]
     Dosage: WEEK 28, 8 CAPSULES
     Route: 048
  34. METHOTREXATE [Suspect]
     Dosage: WEEK 27, 8 CAPSULES
     Route: 048
  35. METHOTREXATE [Suspect]
     Dosage: WEEK 26, 8 CAPSULES
     Route: 048
  36. METHOTREXATE [Suspect]
     Dosage: WEEK 25, 8 CAPSULES
     Route: 048
  37. METHOTREXATE [Suspect]
     Dosage: WEEK 24, 8 CAPSULES
     Route: 048
  38. METHOTREXATE [Suspect]
     Dosage: WEEK 23, 8 CAPSULES
     Route: 048
  39. METHOTREXATE [Suspect]
     Dosage: WEEK 22, 8 CAPSULES
     Route: 048
  40. METHOTREXATE [Suspect]
     Dosage: WEEK 21, 8 CAPSULES
     Route: 048
  41. METHOTREXATE [Suspect]
     Dosage: WEEK 20, 8 CAPSULES
     Route: 048
  42. METHOTREXATE [Suspect]
     Dosage: WEEK 19, 8 CAPSULES
     Route: 048
  43. METHOTREXATE [Suspect]
     Dosage: WEEK 18, 8 CAPSULES
     Route: 048
  44. METHOTREXATE [Suspect]
     Dosage: WEEK 17, 8 CAPSULES
     Route: 048
  45. METHOTREXATE [Suspect]
     Dosage: WEEK 16, 8 CAPSULES
     Route: 048
  46. METHOTREXATE [Suspect]
     Dosage: WEEK 15, 8 CAPSULES
     Route: 048
  47. METHOTREXATE [Suspect]
     Dosage: WEEK 14, 8 CAPSULES
     Route: 048
  48. METHOTREXATE [Suspect]
     Dosage: WEEK 13, 8 CAPSULES
     Route: 048
  49. METHOTREXATE [Suspect]
     Dosage: WEEK 12, 8 CAPSULES
     Route: 048
  50. METHOTREXATE [Suspect]
     Dosage: WEEK 11, 8 CAPSULES
     Route: 048
  51. METHOTREXATE [Suspect]
     Dosage: WEEK 10, 8 CAPSULES
     Route: 048
  52. METHOTREXATE [Suspect]
     Dosage: WEEK 9, 8 CAPSULES
     Route: 048
  53. METHOTREXATE [Suspect]
     Dosage: WEEK 8, 8 CAPSULES
     Route: 048
  54. METHOTREXATE [Suspect]
     Dosage: WEEK 7, 8 CAPSULES
     Route: 048
  55. METHOTREXATE [Suspect]
     Dosage: WEEK 6, 8 CAPSULES
     Route: 048
  56. METHOTREXATE [Suspect]
     Dosage: WEEK 5, 8 CAPSULES
     Route: 048
  57. METHOTREXATE [Suspect]
     Dosage: WEEK 4, 8 CAPSULES
     Route: 048
  58. METHOTREXATE [Suspect]
     Dosage: WEEK 3, 8 CAPSULES
     Route: 048
  59. METHOTREXATE [Suspect]
     Dosage: WEEK 2, 8 CAPSULES
     Route: 048
  60. METHOTREXATE [Suspect]
     Dosage: WEEK 1, 8 CAPSULES
     Route: 048
  61. METHOTREXATE [Suspect]
     Dosage: WEEK 0, 8 CAPSULES
     Route: 048
  62. METHOTREXATE [Suspect]
     Dosage: WEEK 0  -2 WEEKS, 8 CAPSULES
     Route: 048
  63. METHOTREXATE [Suspect]
     Dosage: WEEK 0  -3 WEEKS, 8 CAPSULES
     Route: 048
  64. METHOTREXATE [Suspect]
     Dosage: WEEK 0/ -4 WEEKS, 8 CAPSULES
     Route: 048
  65. METHOTREXATE [Suspect]
     Dosage: WEEK 0  -1 WEEK, 8 CAPSULES
     Route: 048
  66. DYAZIDE [Concomitant]
     Route: 048
  67. COZAAR [Concomitant]
     Route: 048
  68. TENORMIN [Concomitant]
     Route: 048
  69. CELEBREX [Concomitant]
     Route: 048
  70. FOLIC ACID [Concomitant]
     Route: 048
  71. NAPROXEN [Concomitant]
     Route: 048
  72. ULTRAM [Concomitant]
     Route: 048
  73. PROGESTERONE [Concomitant]
     Route: 048
  74. PROGESTERONE [Concomitant]
     Route: 048
  75. PROGESTERONE [Concomitant]
     Route: 048
  76. PROGESTERONE [Concomitant]
     Route: 048

REACTIONS (1)
  - UTERINE LEIOMYOMA [None]
